FAERS Safety Report 17646343 (Version 2)
Quarter: 2021Q2

REPORT INFORMATION
  Report Type: Report from Study
  Country: MX (occurrence: MX)
  Receive Date: 20200408
  Receipt Date: 20210405
  Transmission Date: 20210716
  Serious: Yes (Other)
  Sender: FDA-Public Use
  Company Number: NVSC2020MX094736

PATIENT
  Sex: Female
  Weight: 52 kg

DRUGS (4)
  1. AMARYL [Concomitant]
     Active Substance: GLIMEPIRIDE
     Indication: DIABETES MELLITUS
     Dosage: 1 DF, Q24H (STARTED 20 YEARS AGO)
     Route: 048
  2. COZAAR [Concomitant]
     Active Substance: LOSARTAN POTASSIUM
     Indication: HYPERTENSION
     Dosage: 1 DF, Q24H (STARTED 30 YEARS AGO)
     Route: 048
  3. FEMARA [Suspect]
     Active Substance: LETROZOLE
     Indication: NEOPLASM
     Dosage: 1 DF, QD (2.5 MG)
     Route: 048
     Dates: start: 201910
  4. DILACORAN [Concomitant]
     Active Substance: VERAPAMIL HYDROCHLORIDE
     Indication: HYPERTENSION
     Dosage: 1 DF, Q24H (STARTED 30 YEARS AGO)
     Route: 048

REACTIONS (2)
  - Recurrent cancer [Unknown]
  - Product use in unapproved indication [Unknown]
